FAERS Safety Report 5235259-4 (Version None)
Quarter: 2007Q1

REPORT INFORMATION
  Report Type: 
  Country: None (occurrence: None)
  Receive Date: 20070212
  Receipt Date: 20070207
  Transmission Date: 20070707
  Serious: Yes (Hospitalization, Other)
  Sender: FDA-Public Use
  Company Number: JP-ELI_LILLY_AND_COMPANY-JP200612003205

PATIENT
  Age: 63 Year
  Sex: Female
  Weight: 50 kg

DRUGS (10)
  1. ZYPREXA [Suspect]
     Indication: SCHIZOPHRENIA
     Dosage: 5 MG, DAILY (1/D)
     Route: 048
     Dates: start: 20020907, end: 20020901
  2. ZYPREXA [Suspect]
     Dosage: 20 MG, DAILY (1/D)
     Route: 048
     Dates: start: 20020901, end: 20060501
  3. ZYPREXA [Suspect]
     Route: 048
     Dates: start: 20060501, end: 20061206
  4. SEPAZON [Concomitant]
     Route: 048
  5. ROHYPNOL                                /NET/ [Concomitant]
     Dosage: 1 MG, DAILY (1/D)
     Route: 048
  6. ZOTEPINE [Concomitant]
     Indication: SCHIZOPHRENIA
     Dosage: 50 MG, DAILY (1/D)
     Route: 048
     Dates: start: 20050215
  7. ZOTEPINE [Concomitant]
     Dosage: 300 MG, DAILY (1/D)
     Route: 048
     Dates: end: 20060214
  8. LEXOTAN [Concomitant]
     Dosage: 2 MG, 2/D
     Route: 048
     Dates: end: 20060801
  9. UBRETID [Concomitant]
     Indication: DYSURIA
     Dosage: 5 MG, DAILY (1/D)
     Route: 048
  10. UBRETID [Concomitant]
     Dosage: 5 MG, 2/D
     Route: 048
     Dates: end: 20051213

REACTIONS (5)
  - CHOLELITHIASIS [None]
  - EOSINOPHIL COUNT INCREASED [None]
  - HEPATIC FUNCTION ABNORMAL [None]
  - JAUNDICE [None]
  - LYMPHADENOPATHY [None]
